FAERS Safety Report 9397819 (Version 3)
Quarter: 2013Q3

REPORT INFORMATION
  Report Type: Spontaneous
  Country: US (occurrence: US)
  Receive Date: 20130712
  Receipt Date: 20130806
  Transmission Date: 20140515
  Serious: Yes (Hospitalization)
  Sender: FDA-Public Use
  Company Number: US-PFIZER INC-2013204062

PATIENT
  Age: 64 Year
  Sex: Male
  Weight: 150 kg

DRUGS (20)
  1. XELJANZ [Suspect]
     Indication: RHEUMATOID ARTHRITIS
     Dosage: 5 MG 1 TABLET, 2X/DAY
     Route: 048
  2. XYZAL [Concomitant]
     Dosage: 5 MG, 1X/DAY
  3. LASIX [Concomitant]
     Dosage: 20 MG, 1X/DAY
  4. ZOLOFT [Concomitant]
     Dosage: 50 MG, 1X/DAY
  5. PREDNISONE [Concomitant]
     Dosage: 5 MG, 1X/DAY (PRN)
  6. NEXIUM [Concomitant]
     Dosage: 40 MG, 1X/DAY
  7. NEXIUM [Concomitant]
     Dosage: 40 MG, 1X/DAY
  8. ALLOPURINOL [Concomitant]
     Dosage: 100 MG 3X/DAY
  9. FLOMAX [Concomitant]
     Dosage: 0.4 MG, 1X/DAY
  10. VITAMIN D3 [Concomitant]
     Dosage: 2000 IU, 1X/DAY
  11. FOLIC ACID [Concomitant]
     Dosage: 1 MG, 1X/DAY
  12. FERROUS SULFATE [Concomitant]
     Dosage: 325 MG, 1X/DAY
  13. OXYCONTIN [Concomitant]
     Dosage: 20 MG, 2X/DAY
  14. FORTICOL [Concomitant]
     Dosage: 200 IU, 1X/DAY
  15. LEVOTHYROXINE [Concomitant]
     Dosage: 50 UG, 1X/DAY
  16. COMBIVENT [Concomitant]
     Dosage: 103 MCG/18MCG 1 PUFF QID
  17. CYANOCOBALAMIN [Concomitant]
     Dosage: 1000MCG/ML  Q MONTH
  18. VITAMIN E [Concomitant]
     Dosage: 400 IU, 1X/DAY
  19. ASA [Concomitant]
     Dosage: 81 MG, 1X/DAY
  20. MULTIVITAMINS [Concomitant]
     Dosage: UNK I TAB 1X/DAY

REACTIONS (5)
  - Arthropathy [Unknown]
  - Oedema peripheral [Unknown]
  - Fluid retention [Unknown]
  - Gout [Unknown]
  - Drug hypersensitivity [Unknown]
